FAERS Safety Report 4467327-9 (Version None)
Quarter: 2004Q4

REPORT INFORMATION
  Report Type: 
  Country: None (occurrence: None)
  Receive Date: 20041004
  Receipt Date: 20040910
  Transmission Date: 20050328
  Serious: Yes (Hospitalization, Other)
  Sender: FDA-Public Use
  Company Number: USA-2004-0015460

PATIENT
  Age: 46 Year
  Sex: Female

DRUGS (11)
  1. OXYCONTIN [Suspect]
     Indication: PAIN
  2. PROCARDIA [Concomitant]
  3. PRILOSEC [Concomitant]
  4. BUSPAR [Concomitant]
  5. CELEXA [Concomitant]
  6. NEURONTIN [Concomitant]
  7. TRAZODONE HCL [Concomitant]
  8. CLARITIN [Concomitant]
  9. ULTRAM [Concomitant]
  10. ZIAC (HYDROCHLOROTHIAZIED, BISOPROLOL FUMARATE) [Concomitant]
  11. INDAPAMIDE [Concomitant]

REACTIONS (40)
  - ABDOMINAL PAIN [None]
  - AGITATION [None]
  - ANXIETY [None]
  - ARTHRALGIA [None]
  - ASTHENIA [None]
  - BACK PAIN [None]
  - BURNING SENSATION [None]
  - CHEST PAIN [None]
  - DECREASED APPETITE [None]
  - DEEP VEIN THROMBOSIS [None]
  - DEPRESSION [None]
  - DISTURBANCE IN ATTENTION [None]
  - DRUG DEPENDENCE [None]
  - DRUG INEFFECTIVE [None]
  - DRUG WITHDRAWAL SYNDROME [None]
  - FEAR [None]
  - HEADACHE [None]
  - HYPOAESTHESIA [None]
  - ILIAC VEIN THROMBOSIS [None]
  - INADEQUATE ANALGESIA [None]
  - INCOHERENT [None]
  - INJURY [None]
  - LETHARGY [None]
  - MEDICATION ERROR [None]
  - MEMORY IMPAIRMENT [None]
  - MUSCLE SPASMS [None]
  - NAUSEA [None]
  - NECK PAIN [None]
  - NERVOUSNESS [None]
  - OEDEMA PERIPHERAL [None]
  - PAIN [None]
  - PAIN EXACERBATED [None]
  - PAIN IN EXTREMITY [None]
  - PANIC ATTACK [None]
  - SCAR [None]
  - SLEEP DISORDER [None]
  - SOCIAL AVOIDANT BEHAVIOUR [None]
  - STRESS SYMPTOMS [None]
  - THROMBOPHLEBITIS SUPERFICIAL [None]
  - VOMITING [None]
